FAERS Safety Report 6021753-5 (Version None)
Quarter: 2008Q4

REPORT INFORMATION
  Report Type: 
  Country: None (occurrence: None)
  Receive Date: 20081229
  Receipt Date: 20081223
  Transmission Date: 20090506
  Serious: Yes (Hospitalization)
  Sender: FDA-Public Use
  Company Number: PHHY2008SE32954

PATIENT
  Sex: Male

DRUGS (2)
  1. VOLTAREN [Suspect]
     Indication: NECK PAIN
     Dosage: UNK
     Dates: end: 20081001
  2. VOLTAREN [Suspect]
     Indication: ARTHRALGIA

REACTIONS (3)
  - FEELING ABNORMAL [None]
  - SUPRAVENTRICULAR EXTRASYSTOLES [None]
  - VENTRICULAR EXTRASYSTOLES [None]
